FAERS Safety Report 8764883 (Version 2)
Quarter: 2013Q2

REPORT INFORMATION
  Report Type: Report from Study
  Country: JP (occurrence: JP)
  Receive Date: 20120901
  Receipt Date: 20130517
  Transmission Date: 20140414
  Serious: Yes (Other)
  Sender: FDA-Public Use
  Company Number: JP-009507513-1208JPN008233

PATIENT
  Age: 65 Year
  Sex: Female
  Weight: 56 kg

DRUGS (24)
  1. PEGINTRON [Suspect]
     Indication: CHRONIC HEPATITIS C
     Dosage: 1.44 MICROGRAM PER KILOGRAM, QW
     Route: 058
     Dates: start: 20120710
  2. PEGINTRON [Suspect]
     Dosage: 0.4 MICROGRAM PER KILOGRAM, QW
     Route: 058
  3. REBETOL CAPSULES 200MG [Suspect]
     Indication: CHRONIC HEPATITIS C
     Dosage: 400 MG, QD
     Route: 048
     Dates: start: 20120710, end: 20120715
  4. REBETOL CAPSULES 200MG [Suspect]
     Dosage: 600 MG, QD
     Route: 048
     Dates: start: 20120716, end: 20120723
  5. REBETOL CAPSULES 200MG [Suspect]
     Dosage: 400 MG, QD
     Route: 048
     Dates: start: 20120724, end: 20120724
  6. REBETOL CAPSULES 200MG [Suspect]
     Dosage: 200 MG, QD
     Route: 048
     Dates: start: 20120725, end: 20120917
  7. REBETOL CAPSULES 200MG [Suspect]
     Dosage: 400 MG, QD
     Route: 048
     Dates: start: 20120918, end: 20120930
  8. REBETOL CAPSULES 200MG [Suspect]
     Dosage: 200 MG,400MG/DAY, ON ALTERNATE DAYS
     Dates: start: 20121001
  9. REBETOL CAPSULES 200MG [Suspect]
     Dosage: 200 MG, QD
     Route: 048
     Dates: start: 20121009, end: 20121028
  10. REBETOL CAPSULES 200MG [Suspect]
     Dosage: TTUESDAY, THURSDAY, SATURDAY: 400 MG/DAY, MONDAY, WEDNESDAY, FRIDAY, SUNDAY: 200 MG/DAY
     Route: 048
     Dates: start: 20121029, end: 20121111
  11. REBETOL CAPSULES 200MG [Suspect]
     Dosage: 400 MG, QD
     Route: 048
     Dates: start: 20121112, end: 20121125
  12. REBETOL CAPSULES 200MG [Suspect]
     Dosage: TUESDAY, THURSDAY, SATURDAY: 400 MG/DAY, MONDAY, WEDNESDAY, FRIDAY, SUNDAY: 200 MG/DAY
     Route: 048
     Dates: start: 20121126, end: 20121225
  13. REBETOL CAPSULES 200MG [Suspect]
     Dosage: UNK
  14. TELAVIC [Suspect]
     Indication: CHRONIC HEPATITIS C
     Dosage: 1500 MG, QD
     Route: 048
     Dates: start: 20120710, end: 20120715
  15. TELAVIC [Suspect]
     Dosage: 1000 MG, QD
     Route: 048
     Dates: start: 20120716, end: 20120807
  16. TELAVIC [Suspect]
     Dosage: 1500 MG DAILY
     Dates: start: 20120808, end: 20120809
  17. TELAVIC [Suspect]
     Dosage: 1000 MG DAILY
     Route: 048
     Dates: start: 20120810, end: 20120902
  18. PRAVASTATIN SODIUM [Concomitant]
     Indication: HYPERLIPIDAEMIA
     Dosage: 5 MG, QD
     Route: 048
     Dates: start: 20120710
  19. SENNOSIDES [Concomitant]
     Indication: CONSTIPATION
     Dosage: 12 MG, QD
     Route: 048
     Dates: start: 20120711, end: 20120723
  20. SENNOSIDES [Concomitant]
     Dosage: 24 MG, QD
     Route: 048
     Dates: start: 20120724
  21. NOVAMIN (PROCHLORPERAZINE MALEATE) [Concomitant]
     Indication: NAUSEA
     Dosage: 4 DF, QD
     Route: 048
     Dates: start: 20120713
  22. RESTAMIN [Concomitant]
     Indication: RASH
     Dosage: Q.S./DAY, AS NEEDED
     Route: 061
     Dates: start: 20120719, end: 20120724
  23. ALLEGRA [Concomitant]
     Indication: RASH
     Dosage: 2 DOSAGE FORM, QD
     Route: 048
     Dates: start: 20120720
  24. LEXOTAN [Concomitant]
     Indication: DEPRESSIVE SYMPTOM
     Dosage: 2 MG, QD

REACTIONS (1)
  - Syncope [Recovered/Resolved]
